FAERS Safety Report 9392270 (Version 6)
Quarter: 2014Q2

REPORT INFORMATION
  Report Type: Report from Study
  Country: CA (occurrence: CA)
  Receive Date: 20130710
  Receipt Date: 20140610
  Transmission Date: 20141212
  Serious: Yes (Hospitalization, Other)
  Sender: FDA-Public Use
  Company Number: CA-ROCHE-1246695

PATIENT
  Age: 78 Year
  Sex: Female
  Weight: 63.5 kg

DRUGS (21)
  1. RITUXAN [Suspect]
     Indication: RHEUMATOID ARTHRITIS
     Route: 042
     Dates: start: 20090904
  2. RITUXAN [Suspect]
     Route: 042
     Dates: start: 20131104
  3. DIPHENHYDRAMINE HCL [Concomitant]
     Indication: PREMEDICATION
     Route: 048
     Dates: start: 20090904
  4. METHYLPREDNISOLONE [Concomitant]
     Indication: PREMEDICATION
     Route: 042
     Dates: start: 20090904
  5. ACETAMINOPHEN [Concomitant]
     Indication: PREMEDICATION
     Route: 048
     Dates: start: 20090918
  6. ARAVA [Concomitant]
  7. AVAPRO [Concomitant]
  8. LOSEC [Concomitant]
     Route: 065
  9. HYDROCHLOROTHIAZIDE [Concomitant]
  10. ADVIL [Concomitant]
     Route: 065
  11. SPIRIVA [Concomitant]
  12. ELTROXIN [Concomitant]
  13. LIPITOR [Concomitant]
  14. ACETAMINOPHEN [Concomitant]
  15. VITAMIN B12 [Concomitant]
  16. VITAMIN C [Concomitant]
  17. OMEGA 3 [Concomitant]
  18. RESTASIS [Concomitant]
  19. TIMOLOL OPHTHALMIC [Concomitant]
  20. TRAVATAN Z [Concomitant]
  21. PREDNISONE [Concomitant]

REACTIONS (4)
  - Syncope [Unknown]
  - Heart rate increased [Unknown]
  - Blood pressure increased [Unknown]
  - Joint swelling [Not Recovered/Not Resolved]
